FAERS Safety Report 4336228-9 (Version None)
Quarter: 2004Q2

REPORT INFORMATION
  Report Type: 
  Country: None (occurrence: None)
  Receive Date: 20040407
  Receipt Date: 20040319
  Transmission Date: 20050107
  Serious: Yes (Hospitalization)
  Sender: FDA-Public Use
  Company Number: US_021088722

PATIENT
  Age: 31 Year
  Sex: Male

DRUGS (1)
  1. ZYPREXA [Suspect]
     Indication: SCHIZOPHRENIA
     Dosage: 100 MG DAY
     Dates: start: 20011213, end: 20020831

REACTIONS (19)
  - BODY TEMPERATURE DECREASED [None]
  - DEPRESSED LEVEL OF CONSCIOUSNESS [None]
  - FORMICATION [None]
  - HYPERHIDROSIS [None]
  - HYPOXIA [None]
  - INTENTIONAL OVERDOSE [None]
  - METABOLIC ACIDOSIS [None]
  - MUSCLE RIGIDITY [None]
  - RHABDOMYOLYSIS [None]
  - SALIVARY HYPERSECRETION [None]
  - SOCIAL PROBLEM [None]
  - SOMNOLENCE [None]
  - STRESS SYMPTOMS [None]
  - SUICIDE ATTEMPT [None]
  - TACHYCARDIA [None]
  - TACHYPNOEA [None]
  - TREMOR [None]
  - URINARY INCONTINENCE [None]
  - WHITE BLOOD CELL COUNT INCREASED [None]
